FAERS Safety Report 4802106-1 (Version None)
Quarter: 2005Q4

REPORT INFORMATION
  Report Type: 
  Country: None (occurrence: None)
  Receive Date: 20051018
  Receipt Date: 20050216
  Transmission Date: 20060501
  Serious: Yes (Life-Threatening, Disabling)
  Sender: FDA-Public Use
  Company Number: US-MERCK-0502USA02163

PATIENT
  Age: 62 Year
  Sex: Male

DRUGS (5)
  1. ZOCOR [Suspect]
     Indication: BLOOD CHOLESTEROL INCREASED
     Route: 048
  2. OXYCODONE [Concomitant]
     Route: 065
  3. PROPRANOLOL HYDROCHLORIDE [Concomitant]
     Route: 065
  4. FENFLURAMINE HYDROCHLORIDE AND PHENTERMINE [Concomitant]
     Route: 065
  5. [THERAPY UNSPECIFIED] [Concomitant]
     Route: 065

REACTIONS (6)
  - AMNESIA [None]
  - DYSGEUSIA [None]
  - HYPERTENSION [None]
  - MYOPATHY [None]
  - NEUROPATHY PERIPHERAL [None]
  - VERTIGO [None]
